FAERS Safety Report 5983617-2 (Version None)
Quarter: 2008Q4

REPORT INFORMATION
  Report Type: 
  Country: None (occurrence: None)
  Receive Date: 20081208
  Receipt Date: 20081127
  Transmission Date: 20090506
  Serious: Yes (Death, Hospitalization)
  Sender: FDA-Public Use
  Company Number: GB-PFIZER INC-2008101147

PATIENT

DRUGS (6)
  1. PHENYTOIN AND PHENYTOIN SODIUM [Suspect]
  2. GENTAMICIN SULFATE [Suspect]
  3. ACICLOVIR [Suspect]
  4. CEFOTAXIME [Suspect]
     Indication: MENINGITIS
  5. PIPERACILLIN SODIUM AND TAZOBACTAM SODIUM [Suspect]
     Indication: LOWER RESPIRATORY TRACT INFECTION
  6. PREDNISOLONE [Concomitant]

REACTIONS (1)
  - TOXIC EPIDERMAL NECROLYSIS [None]
